FAERS Safety Report 9104703 (Version 3)
Quarter: 2013Q2

REPORT INFORMATION
  Report Type: Spontaneous
  Country: US (occurrence: US)
  Receive Date: 20130220
  Receipt Date: 20130514
  Transmission Date: 20140414
  Serious: Yes (Hospitalization, Other)
  Sender: FDA-Public Use
  Company Number: US-PFIZER INC-2013064390

PATIENT
  Age: 82 Year
  Sex: Female
  Weight: 56 kg

DRUGS (5)
  1. LYRICA [Suspect]
     Indication: FIBROMYALGIA
     Dosage: 50 MG, 2X/DAY
     Route: 048
     Dates: start: 201011, end: 2013
  2. LYRICA [Suspect]
     Dosage: 50 MG, DAILY
     Route: 048
     Dates: start: 2013
  3. LIDOCAINE [Concomitant]
     Indication: PAIN
     Dosage: 3 DF, 1X/DAY
  4. FENTANYL [Concomitant]
     Dosage: UNK
  5. HYDROCODONE [Concomitant]
     Indication: PAIN
     Dosage: UNK, AS NEEDED

REACTIONS (7)
  - Urinary tract infection [Unknown]
  - Circulatory collapse [Unknown]
  - Dehydration [Unknown]
  - Gastroenteritis viral [Unknown]
  - Fall [Unknown]
  - Dementia [Unknown]
  - Influenza [Unknown]
